FAERS Safety Report 17105168 (Version 2)
Quarter: 2020Q2

REPORT INFORMATION
  Report Type: Spontaneous
  Country: US (occurrence: US)
  Receive Date: 20191203
  Receipt Date: 20200615
  Transmission Date: 20200713
  Serious: Yes (Other)
  Sender: FDA-Public Use
  Company Number: US-SA-2019SA333313

PATIENT

DRUGS (6)
  1. TAXOTERE [Suspect]
     Active Substance: DOCETAXEL
     Indication: BREAST CANCER FEMALE
     Dosage: 1 MG, Q3W
     Route: 042
     Dates: start: 20150710, end: 20150710
  2. PARAPLATIN [Concomitant]
     Active Substance: CARBOPLATIN
     Indication: BREAST CANCER FEMALE
     Dosage: UNK
     Route: 065
  3. TAXOTERE [Suspect]
     Active Substance: DOCETAXEL
     Dosage: 1 MG, Q3W
     Route: 042
     Dates: start: 20151023, end: 20151023
  4. FUROSEMIDE. [Concomitant]
     Active Substance: FUROSEMIDE
     Dosage: UNK
     Route: 065
     Dates: start: 16660101
  5. GLYBURIDE. [Concomitant]
     Active Substance: GLYBURIDE
     Dosage: UNK
     Route: 065
  6. SIMVASTATIN. [Concomitant]
     Active Substance: SIMVASTATIN
     Dosage: UNK
     Route: 065

REACTIONS (6)
  - Anxiety [Unknown]
  - Pain [Unknown]
  - Psychological trauma [Unknown]
  - Alopecia [Not Recovered/Not Resolved]
  - Emotional distress [Unknown]
  - Impaired quality of life [Unknown]

NARRATIVE: CASE EVENT DATE: 20150810
